FAERS Safety Report 5639024-5 (Version None)
Quarter: 2008Q1

REPORT INFORMATION
  Report Type: 
  Country: None (occurrence: None)
  Receive Date: 20080226
  Receipt Date: 20080220
  Transmission Date: 20080703
  Serious: Yes (Death)
  Sender: FDA-Public Use
  Company Number: US-ASTRAZENECA-2008UW02784

PATIENT
  Age: 5 Hour
  Sex: Male
  Weight: 2.8 kg

DRUGS (7)
  1. CRESTOR [Suspect]
     Indication: BLOOD CHOLESTEROL INCREASED
     Route: 064
     Dates: start: 20060101, end: 20070526
  2. GLUCOVANCE [Suspect]
     Indication: DIABETES MELLITUS
     Route: 064
     Dates: start: 20020101, end: 20070526
  3. PROVIGIL [Suspect]
     Indication: FATIGUE
     Route: 064
     Dates: start: 20060101, end: 20070526
  4. DITROPAN [Suspect]
     Indication: INCONTINENCE
     Route: 064
     Dates: start: 20060101, end: 20070526
  5. NEURONTIN [Suspect]
     Indication: MULTIPLE SCLEROSIS
     Route: 064
     Dates: start: 20060101, end: 20070526
  6. NEURONTIN [Suspect]
     Indication: PAIN
     Route: 064
     Dates: start: 20060101, end: 20070526
  7. REBIF [Suspect]
     Indication: MULTIPLE SCLEROSIS
     Route: 064
     Dates: start: 20060426, end: 20070526

REACTIONS (6)
  - CONGENITAL MUSCULOSKELETAL ANOMALY [None]
  - LIMB MALFORMATION [None]
  - PULMONARY MALFORMATION [None]
  - RIB HYPOPLASIA [None]
  - SPINE MALFORMATION [None]
  - TALIPES [None]
